FAERS Safety Report 5830421-1 (Version None)
Quarter: 2008Q3

REPORT INFORMATION
  Report Type: 
  Country: None (occurrence: None)
  Receive Date: 20080801
  Receipt Date: 20080721
  Transmission Date: 20090109
  Serious: Yes (Other)
  Sender: FDA-Public Use
  Company Number: US-JNJFOC-20080705823

PATIENT

DRUGS (8)
  1. REMICADE [Suspect]
  2. REMICADE [Suspect]
     Indication: DRUG EXPOSURE DURING PREGNANCY
  3. PREDNISONE [Concomitant]
     Indication: DRUG EXPOSURE DURING PREGNANCY
  4. AZATHIOPRINE [Concomitant]
     Indication: DRUG EXPOSURE DURING PREGNANCY
  5. ACETAMINOPHEN [Concomitant]
  6. ACETAMINOPHEN [Concomitant]
     Indication: DRUG EXPOSURE DURING PREGNANCY
  7. ANTIHISTAMINE [Concomitant]
  8. ANTIHISTAMINE [Concomitant]
     Indication: DRUG EXPOSURE DURING PREGNANCY

REACTIONS (2)
  - DRUG EXPOSURE DURING PREGNANCY [None]
  - PREMATURE BABY [None]
